FAERS Safety Report 13496827 (Version 3)
Quarter: 2017Q2

REPORT INFORMATION
  Report Type: Spontaneous
  Country: JP (occurrence: JP)
  Receive Date: 20170428
  Receipt Date: 20170610
  Transmission Date: 20170830
  Serious: Yes (Hospitalization)
  Sender: FDA-Public Use
  Company Number: JP-AMGEN-JPNSP2017065061

PATIENT
  Age: 48 Year
  Sex: Female
  Weight: 58 kg

DRUGS (10)
  1. DECADRON [Concomitant]
     Active Substance: DEXAMETHASONE
     Dosage: 4 MG, QD
     Route: 048
     Dates: start: 20170314, end: 20170316
  2. DECADRON [Concomitant]
     Active Substance: DEXAMETHASONE
     Dosage: 13.2 MG, QD
     Route: 041
     Dates: start: 20170313, end: 20170313
  3. ALOXI [Concomitant]
     Active Substance: PALONOSETRON HYDROCHLORIDE
     Dosage: 0.75 MG, QD
     Route: 041
     Dates: start: 20170313, end: 20170313
  4. EMEND [Concomitant]
     Active Substance: APREPITANT
     Dosage: 120 MG, QD
     Route: 048
     Dates: start: 20170313, end: 20170313
  5. G-LASTA [Suspect]
     Active Substance: PEGFILGRASTIM
     Indication: PRODUCT USED FOR UNKNOWN INDICATION
     Dosage: 3.6 MG, QD
     Route: 058
     Dates: start: 20170314, end: 20170314
  6. ADRIACIN [Concomitant]
     Active Substance: DOXORUBICIN HYDROCHLORIDE
     Indication: BREAST CANCER
     Dosage: 94 MG, QD
     Route: 041
     Dates: start: 20170313, end: 20170313
  7. ISOTONIC SODIUM CHLORIDE SOLUTION [Concomitant]
     Active Substance: SODIUM CHLORIDE
     Dosage: 250 ML, UNK
     Route: 041
     Dates: start: 20170311
  8. EMEND [Concomitant]
     Active Substance: APREPITANT
     Dosage: 80 MG, QD
     Route: 048
     Dates: start: 20170314, end: 20170315
  9. ENDOXAN [Concomitant]
     Active Substance: CYCLOPHOSPHAMIDE
     Indication: BREAST CANCER
     Dosage: 940 MG, QD
     Route: 041
     Dates: start: 20170313, end: 20170313
  10. GLUCOSE [Concomitant]
     Active Substance: DEXTROSE
     Dosage: 50 ML, UNK
     Route: 041
     Dates: start: 20170311

REACTIONS (1)
  - Anaphylactic reaction [Recovered/Resolved]

NARRATIVE: CASE EVENT DATE: 20170314
